FAERS Safety Report 10767177 (Version 1)
Quarter: 2015Q1

REPORT INFORMATION
  Report Type: Spontaneous
  Country: US (occurrence: US)
  Receive Date: 20150205
  Receipt Date: 20150205
  Transmission Date: 20150721
  Serious: Yes (Death)
  Sender: FDA-Public Use
  Company Number: US-PERRIGO-15US001379

PATIENT
  Age: 17 Year
  Sex: Male

DRUGS (2)
  1. HEROIN [Suspect]
     Active Substance: DIACETYLMORPHINE
     Indication: DRUG ABUSE
     Dosage: UNKNOWN, UNKNOWN
     Route: 051
  2. MORPHINE SULFATE 20 MG/ML 0L8 [Suspect]
     Active Substance: MORPHINE SULFATE
     Indication: DRUG ABUSE
     Dosage: UNKNOWN, UNKNOWN
     Route: 051

REACTIONS (1)
  - Death [Fatal]
